FAERS Safety Report 4427184-3 (Version None)
Quarter: 2004Q3

REPORT INFORMATION
  Report Type: 
  Country: None (occurrence: None)
  Receive Date: 20040726
  Receipt Date: 20040423
  Transmission Date: 20050211
  Serious: Yes (Hospitalization, Other)
  Sender: FDA-Public Use
  Company Number: USA031151834

PATIENT
  Age: 63 Year
  Sex: Female
  Weight: 50 kg

DRUGS (13)
  1. HUMULIN N [Suspect]
     Indication: DIABETES MELLITUS
     Dosage: 19 U/DAY
  2. HUMULIN R [Suspect]
     Indication: DIABETES MELLITUS
     Dates: start: 19950101
  3. HUMALOG [Suspect]
     Indication: DIABETES MELLITUS
     Dates: start: 19990101
  4. FORTEO [Suspect]
     Indication: OSTEOPOROSIS
     Dates: start: 20031104, end: 20031109
  5. SYNTHROID [Concomitant]
  6. PREMARIN [Concomitant]
  7. PROVERA [Concomitant]
  8. VALIUM [Concomitant]
  9. VITAMIN C [Concomitant]
  10. VITAMIN B COMPLEX CAP [Concomitant]
  11. VITAMIN E [Concomitant]
  12. ASPIRIN [Concomitant]
  13. CELEBREX [Concomitant]

REACTIONS (29)
  - ABNORMAL CHEST SOUND [None]
  - BALANCE DISORDER [None]
  - BLOOD PRESSURE INCREASED [None]
  - BONE DENSITY DECREASED [None]
  - BONE PAIN [None]
  - CATARACT [None]
  - DIZZINESS [None]
  - DYSPHAGIA [None]
  - DYSPNOEA [None]
  - EPIGASTRIC DISCOMFORT [None]
  - HYPERSENSITIVITY [None]
  - JOINT DISLOCATION [None]
  - JOINT RANGE OF MOTION DECREASED [None]
  - MENTAL IMPAIRMENT [None]
  - MUSCLE SPASMS [None]
  - MUSCLE TIGHTNESS [None]
  - MUSCULAR WEAKNESS [None]
  - MUSCULOSKELETAL STIFFNESS [None]
  - NAUSEA [None]
  - PAIN [None]
  - PAIN IN EXTREMITY [None]
  - PSYCHOTIC DISORDER [None]
  - ROAD TRAFFIC ACCIDENT [None]
  - SPINAL LAMINECTOMY [None]
  - STOMACH DISCOMFORT [None]
  - THINKING ABNORMAL [None]
  - THORACIC VERTEBRAL FRACTURE [None]
  - VISION BLURRED [None]
  - VISUAL DISTURBANCE [None]
